FAERS Safety Report 19937958 (Version 1)
Quarter: 2021Q4

REPORT INFORMATION
  Report Type: Spontaneous
  Country: IN (occurrence: IN)
  Receive Date: 20211011
  Receipt Date: 20211011
  Transmission Date: 20220303
  Serious: Yes (Other)
  Sender: FDA-Public Use
  Company Number: IN-VISTAPHARM, INC.-VER202110-001996

PATIENT

DRUGS (13)
  1. MYCOPHENOLATE MOFETIL [Suspect]
     Active Substance: MYCOPHENOLATE MOFETIL
     Dosage: UNKNOWN
     Route: 064
  2. TACROLIMUS [Suspect]
     Active Substance: TACROLIMUS
     Dosage: UNKNOWN
     Route: 064
  3. PREDNISOLONE [Suspect]
     Active Substance: PREDNISOLONE
     Dosage: UNKNOWN
     Route: 064
  4. AZATHIOPRINE [Suspect]
     Active Substance: AZATHIOPRINE
     Dosage: UNKNOWN
     Route: 064
  5. PROGESTERONE [Suspect]
     Active Substance: PROGESTERONE
     Dosage: UNKNOWN
     Route: 064
  6. DUPHASTON [Suspect]
     Active Substance: DYDROGESTERONE
     Dosage: UNKNOWN
     Route: 064
  7. ESTRADIOL VALERATE [Suspect]
     Active Substance: ESTRADIOL VALERATE
     Dosage: UNKNOWN
     Route: 064
  8. METFORMIN [Suspect]
     Active Substance: METFORMIN HYDROCHLORIDE
     Dosage: UNKNOWN
     Route: 064
  9. INSULIN NOS [Suspect]
     Active Substance: INSULIN NOS
     Dosage: UNKNOWN
     Route: 064
  10. METHYLDOPA [Suspect]
     Active Substance: METHYLDOPA
     Dosage: UNKNOWN
     Route: 064
  11. NIFEDIPINE [Suspect]
     Active Substance: NIFEDIPINE
     Dosage: UNKNOWN
     Route: 064
  12. LABETALOL [Suspect]
     Active Substance: LABETALOL\LABETALOL HYDROCHLORIDE
     Dosage: UNKNOWN
     Route: 064
  13. BETAMETHASONE [Suspect]
     Active Substance: BETAMETHASONE
     Dosage: UNKNOWN
     Route: 064

REACTIONS (5)
  - Foetal growth restriction [Unknown]
  - Oligohydramnios [Unknown]
  - Foetal hypokinesia [Unknown]
  - Ultrasound uterus abnormal [Unknown]
  - Foetal exposure during pregnancy [Unknown]
